FAERS Safety Report 4975334-2 (Version None)
Quarter: 2006Q2

REPORT INFORMATION
  Report Type: 
  Country: None (occurrence: None)
  Receive Date: 20060418
  Receipt Date: 20051102
  Transmission Date: 20061013
  Serious: Yes (Hospitalization)
  Sender: FDA-Public Use
  Company Number: US-MERCK-0511USA00519

PATIENT
  Age: 70 Year
  Sex: Male

DRUGS (4)
  1. VIOXX [Suspect]
     Route: 065
  2. PEPCID [Concomitant]
     Route: 065
  3. PRAVACHOL [Concomitant]
     Route: 065
  4. COUMADIN [Concomitant]
     Route: 065

REACTIONS (11)
  - ATRIAL SEPTAL DEFECT [None]
  - CARDIAC ANEURYSM [None]
  - CARDIAC DISORDER [None]
  - CARDIOVASCULAR DISORDER [None]
  - CEREBROVASCULAR ACCIDENT [None]
  - EMBOLIC CEREBRAL INFARCTION [None]
  - LACUNAR INFARCTION [None]
  - MITRAL VALVE INCOMPETENCE [None]
  - OESOPHAGITIS [None]
  - OSTEOARTHRITIS [None]
  - URETHRAL STENOSIS [None]
